FAERS Safety Report 6370935-1 (Version None)
Quarter: 2009Q3

REPORT INFORMATION
  Report Type: 
  Country: None (occurrence: None)
  Receive Date: 20090923
  Receipt Date: 20071009
  Transmission Date: 20100115
  Serious: No
  Sender: FDA-Public Use
  Company Number: US-ASTRAZENECA-2006UW22326

PATIENT
  Age: 51 Year
  Sex: Female
  Weight: 73.5 kg

DRUGS (44)
  1. SEROQUEL [Suspect]
     Indication: SCHIZOPHRENIA
     Route: 048
     Dates: start: 20020801
  2. SEROQUEL [Suspect]
     Indication: DEPRESSION
     Route: 048
     Dates: start: 20020801
  3. SEROQUEL [Suspect]
     Indication: BIPOLAR DISORDER
     Route: 048
     Dates: start: 20020801
  4. SEROQUEL [Suspect]
     Route: 048
     Dates: start: 20041214
  5. SEROQUEL [Suspect]
     Route: 048
     Dates: start: 20041214
  6. SEROQUEL [Suspect]
     Route: 048
     Dates: start: 20041214
  7. SEROQUEL [Suspect]
     Route: 048
     Dates: start: 20060727, end: 20060927
  8. SEROQUEL [Suspect]
     Route: 048
     Dates: start: 20060727, end: 20060927
  9. SEROQUEL [Suspect]
     Route: 048
     Dates: start: 20060727, end: 20060927
  10. SEROQUEL [Suspect]
     Route: 048
     Dates: start: 20060728, end: 20070725
  11. SEROQUEL [Suspect]
     Route: 048
     Dates: start: 20060728, end: 20070725
  12. SEROQUEL [Suspect]
     Route: 048
     Dates: start: 20060728, end: 20070725
  13. SEROQUEL [Suspect]
     Route: 048
     Dates: start: 20070726, end: 20080108
  14. SEROQUEL [Suspect]
     Route: 048
     Dates: start: 20070726, end: 20080108
  15. SEROQUEL [Suspect]
     Route: 048
     Dates: start: 20070726, end: 20080108
  16. SEROQUEL [Suspect]
     Route: 048
     Dates: start: 20080109, end: 20080221
  17. SEROQUEL [Suspect]
     Route: 048
     Dates: start: 20080109, end: 20080221
  18. SEROQUEL [Suspect]
     Route: 048
     Dates: start: 20080109, end: 20080221
  19. SEROQUEL [Suspect]
     Route: 048
     Dates: start: 20080222
  20. SEROQUEL [Suspect]
     Route: 048
     Dates: start: 20080222
  21. SEROQUEL [Suspect]
     Route: 048
     Dates: start: 20080222
  22. ABILIFY [Concomitant]
     Route: 048
     Dates: start: 19990101
  23. RISPERDAL [Concomitant]
     Route: 048
     Dates: start: 19980101
  24. LEXAPRO [Concomitant]
     Route: 048
  25. LORAZEPAM [Concomitant]
     Route: 048
  26. DEXATRIM [Concomitant]
     Route: 048
     Dates: start: 19800101
  27. PRILOSEC [Concomitant]
     Route: 065
  28. LIPITOR [Concomitant]
     Route: 065
  29. ACTOS [Concomitant]
     Route: 048
  30. GEMFIBROZIL [Concomitant]
     Route: 048
  31. NITROGLYCERIN [Concomitant]
     Route: 060
  32. METFORMIN HCL [Concomitant]
     Route: 048
  33. CLONIDINE [Concomitant]
     Dosage: 1 TO 2 TABLETS AT NIGHT
     Route: 048
  34. ALBUTEROL [Concomitant]
     Indication: DYSPNOEA
     Route: 055
  35. BUSPIRONE HCL [Concomitant]
     Route: 048
  36. LISINOPRIL [Concomitant]
     Route: 048
  37. HYDROXY PAM [Concomitant]
     Route: 048
  38. BENICAR [Concomitant]
     Route: 048
  39. METOPROLOL TARTRATE [Concomitant]
     Route: 048
  40. INVEGA [Concomitant]
     Route: 048
  41. PAXIL [Concomitant]
     Route: 065
  42. PROZAC [Concomitant]
     Route: 065
  43. TRAZODONE [Concomitant]
     Route: 065
  44. CYMBALTA [Concomitant]
     Route: 065

REACTIONS (3)
  - DIABETES MELLITUS [None]
  - OBESITY [None]
  - ULCER [None]
